FAERS Safety Report 20953055 (Version 1)
Quarter: 2022Q2

REPORT INFORMATION
  Report Type: Spontaneous
  Country: US (occurrence: US)
  Receive Date: 20220613
  Receipt Date: 20220613
  Transmission Date: 20220720
  Serious: No
  Sender: FDA-Public Use
  Company Number: US-GALDERMA-US2021015444

PATIENT

DRUGS (2)
  1. DOXYCYCLINE [Suspect]
     Active Substance: DOXYCYCLINE
     Indication: Rosacea
     Dosage: 1 DOSAGE FORM, QD, 1 CAPSULE A DAY
     Route: 048
  2. THYROXINE [Concomitant]
     Active Substance: LEVOTHYROXINE
     Indication: Product used for unknown indication

REACTIONS (2)
  - Pharyngitis [Recovered/Resolved]
  - Drug ineffective [Unknown]
